FAERS Safety Report 9142589 (Version 1)
Quarter: 2013Q1

REPORT INFORMATION
  Report Type: Spontaneous
  Country: US (occurrence: US)
  Receive Date: 20130306
  Receipt Date: 20130306
  Transmission Date: 20140127
  Serious: No
  Sender: FDA-Public Use
  Company Number: US-009507513-1302USA012874

PATIENT
  Sex: Female

DRUGS (2)
  1. ZETIA [Suspect]
     Indication: CAROTID ARTERY DISEASE
     Dosage: UNK
     Route: 048
     Dates: start: 201002
  2. BIOTIN [Concomitant]

REACTIONS (3)
  - Insomnia [Not Recovered/Not Resolved]
  - Alopecia [Not Recovered/Not Resolved]
  - Rash [Unknown]
